FAERS Safety Report 16233968 (Version 3)
Quarter: 2019Q2

REPORT INFORMATION
  Report Type: Spontaneous
  Country: FR (occurrence: FR)
  Receive Date: 20190424
  Receipt Date: 20190605
  Transmission Date: 20190711
  Serious: Yes (Other)
  Sender: FDA-Public Use
  Company Number: FR-PFIZER INC-2019165410

PATIENT
  Age: 67 Year
  Sex: Female

DRUGS (11)
  1. EMEND [Suspect]
     Active Substance: APREPITANT
     Indication: ANTIEMETIC SUPPORTIVE CARE
     Dosage: 1 DF, CYCLIC (125MG-80MG-80MG)
     Route: 048
     Dates: start: 20190221, end: 20190223
  2. OMEPRAZOLE. [Concomitant]
     Active Substance: OMEPRAZOLE
     Dosage: UNK
  3. BISOPROLOL [Concomitant]
     Active Substance: BISOPROLOL
     Dosage: 2,5MG1-0-0
  4. VITAMINE C [Concomitant]
     Active Substance: ASCORBIC ACID
     Dosage: 1G1-1-1
  5. AVASTIN [Suspect]
     Active Substance: BEVACIZUMAB
     Indication: COLORECTAL ADENOCARCINOMA
     Dosage: 245 MG, CYCLIC
     Route: 042
     Dates: start: 20190221, end: 20190221
  6. VITAMINE D [Concomitant]
     Active Substance: CHOLECALCIFEROL
     Dosage: UNK
  7. ZOPHREN [Suspect]
     Active Substance: ONDANSETRON
     Indication: ANTIEMETIC SUPPORTIVE CARE
     Dosage: 8 MG, CYCLIC
     Route: 048
     Dates: start: 20190221, end: 20190221
  8. ATROPINE AGUETTANT [Suspect]
     Active Substance: ATROPINE
     Indication: MUSCLE SPASMS
     Dosage: 0.25 MG, CYCLIC
     Route: 058
     Dates: start: 20190221, end: 20190221
  9. IRINOTECAN KABI [Suspect]
     Active Substance: IRINOTECAN
     Indication: COLORECTAL ADENOCARCINOMA
     Dosage: 194 MG, CYCLIC
     Route: 042
     Dates: start: 20190221, end: 20190221
  10. PREDNISOLONE MYLAN [Suspect]
     Active Substance: PREDNISOLONE
     Indication: ALLERGY PROPHYLAXIS
     Dosage: 40 MG, CYCLIC
     Route: 048
     Dates: start: 20190221, end: 20190223
  11. CURCUMIN [Concomitant]
     Active Substance: CURCUMIN
     Dosage: UNK

REACTIONS (5)
  - Hypersensitivity [Recovered/Resolved]
  - Hypertension [Recovered/Resolved]
  - Malaise [Recovered/Resolved]
  - Nausea [Recovered/Resolved]
  - Urticaria [Recovered/Resolved]

NARRATIVE: CASE EVENT DATE: 20190221
